FAERS Safety Report 7463291-9 (Version None)
Quarter: 2011Q2

REPORT INFORMATION
  Report Type: 
  Country: None (occurrence: None)
  Receive Date: 20110506
  Receipt Date: 20101229
  Transmission Date: 20111010
  Serious: Yes (Hospitalization, Other)
  Sender: FDA-Public Use
  Company Number: US-BAYER-201034363NA

PATIENT
  Age: 27 Year
  Sex: Female
  Weight: 54.422 kg

DRUGS (1)
  1. YASMIN [Suspect]
     Indication: ORAL CONTRACEPTION
     Dosage: UNK
     Route: 048
     Dates: start: 20050401, end: 20070501

REACTIONS (6)
  - CHEST PAIN [None]
  - AMNESIA [None]
  - DYSPNOEA [None]
  - CEREBRAL VENOUS THROMBOSIS [None]
  - CEREBRAL INFARCTION [None]
  - PULMONARY EMBOLISM [None]
